FAERS Safety Report 6046876-6 (Version None)
Quarter: 2009Q1

REPORT INFORMATION
  Report Type: 
  Country: None (occurrence: None)
  Receive Date: 20090122
  Receipt Date: 20090115
  Transmission Date: 20090719
  Serious: Yes (Hospitalization)
  Sender: FDA-Public Use
  Company Number: B0536066A

PATIENT
  Age: 63 Year
  Sex: Female
  Weight: 76 kg

DRUGS (3)
  1. LAPATINIB [Suspect]
     Dosage: 1250MG PER DAY
     Route: 048
     Dates: start: 20080714, end: 20080831
  2. CAPECITABINE [Suspect]
     Dosage: 3300MG PER DAY
     Route: 048
     Dates: start: 20080714, end: 20080818
  3. VALSARTAN [Concomitant]
     Indication: HYPERTENSION
     Dosage: 80MG PER DAY
     Route: 048
     Dates: start: 19960101

REACTIONS (1)
  - PULMONARY EMBOLISM [None]
